FAERS Safety Report 9656635 (Version 4)
Quarter: 2014Q1

REPORT INFORMATION
  Report Type: Report from Study
  Country: RU (occurrence: RU)
  Receive Date: 20131030
  Receipt Date: 20140107
  Transmission Date: 20141002
  Serious: Yes (Death)
  Sender: FDA-Public Use
  Company Number: RU-ASTELLAS-2012US006982

PATIENT
  Age: 53 Year
  Sex: Female
  Weight: 48 kg

DRUGS (3)
  1. ERLOTINIB TABLET [Suspect]
     Indication: HEPATOCELLULAR CARCINOMA
     Dosage: 150 MG, UID/QD
     Route: 048
     Dates: start: 20100907, end: 20120710
  2. SORAFENIB [Suspect]
     Indication: HEPATOCELLULAR CARCINOMA
     Dosage: 800 MG, UID/QD
     Route: 048
     Dates: start: 20100907, end: 20120710
  3. BERODUAL [Concomitant]
     Indication: DYSPNOEA
     Dosage: UNK
     Route: 065
     Dates: start: 20120523, end: 20120722

REACTIONS (2)
  - Off label use [Unknown]
  - Malignant neoplasm progression [Fatal]
